FAERS Safety Report 8376707-0 (Version None)
Quarter: 2012Q2

REPORT INFORMATION
  Report Type: 
  Country: None (occurrence: None)
  Receive Date: 20120522
  Receipt Date: 20120515
  Transmission Date: 20120825
  Serious: No
  Sender: FDA-Public Use
  Company Number: US-ASTRAZENECA-2012SE31415

PATIENT
  Sex: Female

DRUGS (4)
  1. AZITHROMYCIN [Concomitant]
  2. PREDNISONE TAB [Concomitant]
  3. NEBULIZER [Concomitant]
  4. SYMBICORT [Suspect]
     Indication: CHRONIC OBSTRUCTIVE PULMONARY DISEASE
     Dosage: UNKNOWN DOSE, ONE PUFF TWICE DAILY
     Route: 055

REACTIONS (3)
  - MALAISE [None]
  - COUGH [None]
  - OFF LABEL USE [None]
